FAERS Safety Report 12414742 (Version 1)
Quarter: 2016Q2

REPORT INFORMATION
  Report Type: Spontaneous
  Country: US (occurrence: US)
  Receive Date: 20160529
  Receipt Date: 20160529
  Transmission Date: 20160815
  Serious: No
  Sender: FDA-Public Use
  Company Number: US-BIOGEN-2016BI00225921

PATIENT
  Sex: Female

DRUGS (1)
  1. TYSABRI [Suspect]
     Active Substance: NATALIZUMAB
     Indication: MULTIPLE SCLEROSIS
     Dates: start: 20110824

REACTIONS (7)
  - Concussion [Unknown]
  - Balance disorder [Unknown]
  - Fall [Unknown]
  - Peroneal nerve palsy [Unknown]
  - Visual impairment [Unknown]
  - Optic neuritis [Unknown]
  - Influenza [Unknown]
